FAERS Safety Report 7996846-3 (Version None)
Quarter: 2011Q4

REPORT INFORMATION
  Report Type: 
  Country: None (occurrence: None)
  Receive Date: 20111221
  Receipt Date: 20111207
  Transmission Date: 20120403
  Serious: Yes (Other)
  Sender: FDA-Public Use
  Company Number: RO-RANBAXY-2011RR-51086

PATIENT
  Age: 55 Year
  Sex: Male

DRUGS (8)
  1. METFORMIN HCL [Suspect]
     Indication: DIABETES MELLITUS
     Dosage: 500 MG, BID
     Route: 065
  2. GLIMEPIRIDE [Suspect]
     Indication: DIABETES MELLITUS
     Dosage: 2 MG, UNK
     Route: 065
  3. GLIMEPIRIDE [Suspect]
     Dosage: 2 MG, BID
  4. BASAL INSULIN [Concomitant]
     Indication: DIABETES MELLITUS
     Dosage: 20 IU, UNK
     Route: 065
  5. SIMVASTATIN [Concomitant]
     Indication: DYSLIPIDAEMIA
     Dosage: 20 MG, UNK
     Route: 065
  6. METFORMIN HCL [Suspect]
     Dosage: 1000 MG, BID
  7. METFORMIN HCL [Suspect]
     Dosage: HIGHER THAN 2000 MG
     Route: 065
  8. FENOFIBRATE [Concomitant]
     Indication: DYSLIPIDAEMIA
     Dosage: 160 MG, UNK
     Route: 065

REACTIONS (3)
  - GASTROINTESTINAL DISORDER [None]
  - DRUG INTERACTION [None]
  - HYPOGLYCAEMIA [None]
